FAERS Safety Report 19625453 (Version 1)
Quarter: 2021Q3

REPORT INFORMATION
  Report Type: Report from Study
  Country: ES (occurrence: ES)
  Receive Date: 20210728
  Receipt Date: 20210728
  Transmission Date: 20211014
  Serious: Yes (Congenital Anomaly)
  Sender: FDA-Public Use
  Company Number: ES-TAKEDA-2021TUS044412

PATIENT
  Age: 9 Year
  Sex: Male

DRUGS (8)
  1. NITROUS OXIDE. [Concomitant]
     Active Substance: NITROUS OXIDE
     Dosage: 4 LITERS PER MINUTE, ONE DOSE
     Route: 055
     Dates: start: 20201112, end: 20201112
  2. NITROUS OXIDE. [Concomitant]
     Active Substance: NITROUS OXIDE
     Dosage: 4 LITERS PER MINUTE, ONE DOSE
     Route: 055
     Dates: start: 20200112, end: 20200112
  3. TEDUGLUTIDE [Suspect]
     Active Substance: TEDUGLUTIDE
     Indication: PRODUCT USED FOR UNKNOWN INDICATION
     Dosage: 1.200 MILLIGRAM(0.0500 MG/KG), QD
     Route: 065
     Dates: start: 20190827, end: 20191211
  4. TEDUGLUTIDE [Suspect]
     Active Substance: TEDUGLUTIDE
     Indication: PRODUCT USED FOR UNKNOWN INDICATION
     Dosage: 1.200 MILLIGRAM(0.0500 MG/KG), QD
     Route: 065
     Dates: start: 20190827, end: 20191211
  5. TEDUGLUTIDE [Suspect]
     Active Substance: TEDUGLUTIDE
     Indication: PRODUCT USED FOR UNKNOWN INDICATION
     Dosage: 1.200 MILLIGRAM(0.0500 MG/KG), QD
     Route: 065
     Dates: start: 20190827, end: 20191211
  6. NITROUS OXIDE. [Concomitant]
     Active Substance: NITROUS OXIDE
     Indication: SEDATIVE THERAPY
     Dosage: 4 LITERS PER MINUTE, ONE DOSE
     Route: 055
     Dates: start: 20201113, end: 20201113
  7. TEDUGLUTIDE [Suspect]
     Active Substance: TEDUGLUTIDE
     Indication: PRODUCT USED FOR UNKNOWN INDICATION
     Dosage: 1.200 MILLIGRAM(0.0500 MG/KG), QD
     Route: 065
     Dates: start: 20190827, end: 20191211
  8. NITROUS OXIDE. [Concomitant]
     Active Substance: NITROUS OXIDE
     Dosage: 4 LITERS PER MINUTE, ONE DOSE
     Route: 055
     Dates: start: 20200411, end: 20200411

REACTIONS (2)
  - Neurofibromatosis [Not Recovered/Not Resolved]
  - Abdominal pain [Not Recovered/Not Resolved]

NARRATIVE: CASE EVENT DATE: 20210329
